FAERS Safety Report 6758769-7 (Version None)
Quarter: 2010Q2

REPORT INFORMATION
  Report Type: 
  Country: None (occurrence: None)
  Receive Date: 20100524
  Receipt Date: 20100208
  Transmission Date: 20101027
  Serious: No
  Sender: FDA-Public Use
  Company Number: 006543

PATIENT
  Sex: Female
  Weight: 72.2 kg

DRUGS (6)
  1. CIMZIA [Suspect]
     Indication: CROHN'S DISEASE
     Dosage: (400 MG SUBCUTANEOUS)
     Route: 058
     Dates: start: 20100203
  2. CELEXA [Concomitant]
  3. BUPROPION HCL [Concomitant]
  4. DAILY VITAMINS [Concomitant]
  5. SPRINTEC [Concomitant]
  6. PHENTERMINE [Concomitant]

REACTIONS (3)
  - ASTHENIA [None]
  - DIARRHOEA [None]
  - RASH [None]
